FAERS Safety Report 8502056-3 (Version None)
Quarter: 2012Q3

REPORT INFORMATION
  Report Type: 
  Country: None (occurrence: None)
  Receive Date: 20120711
  Receipt Date: 20120621
  Transmission Date: 20120928
  Serious: Yes (Other)
  Sender: FDA-Public Use
  Company Number: CA-JNJFOC-20120611255

PATIENT
  Sex: Female
  Weight: 69 kg

DRUGS (6)
  1. REMICADE [Suspect]
     Indication: CROHN'S DISEASE
     Route: 042
     Dates: start: 20111201
  2. REMICADE [Suspect]
     Dosage: 5TH INFUSION
     Route: 042
     Dates: start: 20120430
  3. BUDESONIDE [Concomitant]
     Route: 065
  4. ALL OTHER THERAPEUTIC DRUGS [Concomitant]
     Route: 065
  5. OMEGA 3-6-9 [Concomitant]
     Route: 065
  6. VITAMIN D [Concomitant]
     Route: 065

REACTIONS (1)
  - CELLULITIS [None]
